FAERS Safety Report 8811846 (Version 1)
Quarter: 2012Q4

REPORT INFORMATION
  Report Type: 
  Country: CN (occurrence: CN)
  Receive Date: 20120927
  Receipt Date: 20120927
  Transmission Date: 20130627
  Serious: Yes (Other)
  Sender: FDA-Public Use
  Company Number: CN-GLAXOSMITHKLINE-B0832839A

PATIENT
  Sex: Male
  Weight: 65 kg

DRUGS (1)
  1. LAMIVUDINE [Suspect]
     Indication: ANTIVIRAL TREATMENT
     Dosage: 100MG Per day
     Route: 048
     Dates: start: 20100119, end: 20100120

REACTIONS (1)
  - Convulsion [Recovered/Resolved]
